FAERS Safety Report 20974771 (Version 3)
Quarter: 2022Q3

REPORT INFORMATION
  Report Type: Spontaneous
  Country: US (occurrence: US)
  Receive Date: 20220617
  Receipt Date: 20220708
  Transmission Date: 20221026
  Serious: No
  Sender: FDA-Public Use
  Company Number: US-LUPIN PHARMACEUTICALS INC.-2022-08679

PATIENT
  Age: 42 Year
  Sex: Male
  Weight: 72.562 kg

DRUGS (1)
  1. LOSARTAN POTASSIUM [Suspect]
     Active Substance: LOSARTAN POTASSIUM
     Indication: Blood pressure abnormal
     Dosage: 100 MG, QD
     Route: 065

REACTIONS (3)
  - Recalled product administered [Unknown]
  - Product dose omission issue [Unknown]
  - Blood pressure increased [Unknown]
